FAERS Safety Report 11199383 (Version 1)
Quarter: 2015Q2

REPORT INFORMATION
  Report Type: Report from Study
  Country: BR (occurrence: BR)
  Receive Date: 20150618
  Receipt Date: 20150618
  Transmission Date: 20150821
  Serious: Yes (Hospitalization)
  Sender: FDA-Public Use
  Company Number: BR-BIOGENIDEC-2015BI082986

PATIENT
  Age: 43 Year
  Sex: Female

DRUGS (4)
  1. CLONAZEPAN [Concomitant]
     Active Substance: CLONAZEPAM
  2. TYSABRI [Suspect]
     Active Substance: NATALIZUMAB
     Indication: MULTIPLE SCLEROSIS
     Route: 042
     Dates: start: 201305
  3. AMYTRIPTYLINE [Concomitant]
  4. FLUOXETINE [Concomitant]
     Active Substance: FLUOXETINE\FLUOXETINE HYDROCHLORIDE

REACTIONS (3)
  - Paraesthesia [Recovered/Resolved]
  - Urinary incontinence [Recovered/Resolved]
  - Hemiparesis [Recovered/Resolved]

NARRATIVE: CASE EVENT DATE: 201504
